FAERS Safety Report 4751260-9 (Version None)
Quarter: 2005Q3

REPORT INFORMATION
  Report Type: 
  Country: None (occurrence: None)
  Receive Date: 20050822
  Receipt Date: 20050811
  Transmission Date: 20060218
  Serious: Yes (Other)
  Sender: FDA-Public Use
  Company Number: 2005115041

PATIENT
  Age: 60 Year
  Sex: Male
  Weight: 89.8122 kg

DRUGS (10)
  1. CELEBREX [Suspect]
     Indication: ARTHRITIS
     Dosage: 400 MG (200 MG, 2 IN 1 D)
  2. FENTANYL [Concomitant]
  3. HYDROCODONE (HYDROCODONE) [Concomitant]
  4. XANAX [Concomitant]
  5. SEROQUEL [Concomitant]
  6. TRAZODONE HCL [Concomitant]
  7. SOMA [Concomitant]
  8. NEXIUM [Concomitant]
  9. ATACAND [Concomitant]
  10. HYDROXYZINE [Concomitant]

REACTIONS (3)
  - PROCEDURAL COMPLICATION [None]
  - PROSTATE CANCER [None]
  - SPINAL OSTEOARTHRITIS [None]
